FAERS Safety Report 4775099-3 (Version None)
Quarter: 2005Q3

REPORT INFORMATION
  Report Type: 
  Country: None (occurrence: None)
  Receive Date: 20050920
  Receipt Date: 20050902
  Transmission Date: 20060218
  Serious: Yes (Other)
  Sender: FDA-Public Use
  Company Number: GBWYE982015SEP05

PATIENT
  Sex: Female

DRUGS (3)
  1. EFFEXOR [Suspect]
     Route: 048
     Dates: end: 20050101
  2. PROZAC [Concomitant]
  3. TAMOXIFEN CITRATE [Concomitant]

REACTIONS (7)
  - BREAST CANCER FEMALE [None]
  - CONDITION AGGRAVATED [None]
  - CONSTIPATION [None]
  - FEELING OF DESPAIR [None]
  - GENERAL PHYSICAL HEALTH DETERIORATION [None]
  - NEOPLASM RECURRENCE [None]
  - PAIN [None]
